FAERS Safety Report 7393547-X (Version None)
Quarter: 2011Q1

REPORT INFORMATION
  Report Type: 
  Country: None (occurrence: None)
  Receive Date: 20110331
  Receipt Date: 20110331
  Transmission Date: 20110831
  Serious: No
  Sender: FDA-Public Use
  Company Number: None

PATIENT
  Age: 49 Year
  Sex: Female

DRUGS (1)
  1. TAMOXIFEN CITRATE [Suspect]
     Dosage: 20 MG PER DAY
     Dates: start: 20080601, end: 20091125

REACTIONS (7)
  - LIVER INJURY [None]
  - HEPATOTOXICITY [None]
  - BLOOD CHOLESTEROL INCREASED [None]
  - HEPATIC NECROSIS [None]
  - HEPATIC STEATOSIS [None]
  - BLOOD TRIGLYCERIDES INCREASED [None]
  - THYROID CANCER [None]
